FAERS Safety Report 24715874 (Version 1)
Quarter: 2024Q4

REPORT INFORMATION
  Report Type: Spontaneous
  Country: FR (occurrence: FR)
  Receive Date: 20241210
  Receipt Date: 20241210
  Transmission Date: 20250115
  Serious: Yes (Death, Other)
  Sender: AUROBINDO
  Company Number: FR-AFSSAPS-LL2024002110

PATIENT
  Age: 59 Year
  Sex: Female

DRUGS (3)
  1. CARBOPLATIN [Suspect]
     Active Substance: CARBOPLATIN
     Indication: Lung adenocarcinoma
     Route: 042
     Dates: start: 20241015
  2. PEMETREXED [Suspect]
     Active Substance: PEMETREXED
     Indication: Lung adenocarcinoma
     Dosage: 1 DOSAGE FORM
     Route: 042
     Dates: start: 20241015
  3. AMIVANTAMAB [Suspect]
     Active Substance: AMIVANTAMAB
     Indication: Lung adenocarcinoma
     Dosage: 1 DOSAGE FORM
     Route: 042
     Dates: start: 20241015

REACTIONS (2)
  - Febrile bone marrow aplasia [Fatal]
  - Septic shock [Fatal]

NARRATIVE: CASE EVENT DATE: 20241025
